FAERS Safety Report 25659130 (Version 1)
Quarter: 2025Q3

REPORT INFORMATION
  Report Type: Spontaneous
  Country: US (occurrence: US)
  Receive Date: 20250808
  Receipt Date: 20250808
  Transmission Date: 20251020
  Serious: Yes (Other)
  Sender: BAXTER
  Company Number: US-MLMSERVICE-20240613-PI100060-00175-1

PATIENT
  Age: 53 Year
  Sex: Female

DRUGS (2)
  1. HEPARIN SODIUM [Suspect]
     Active Substance: HEPARIN SODIUM
     Indication: Portal vein thrombosis
     Route: 065
  2. HEPARIN SODIUM [Suspect]
     Active Substance: HEPARIN SODIUM
     Indication: Mesenteric vein thrombosis

REACTIONS (9)
  - Splenic rupture [Unknown]
  - Haemoperitoneum [Unknown]
  - Splenic infarction [Unknown]
  - Pallor [Unknown]
  - Hypotension [Unknown]
  - Tachycardia [Unknown]
  - Abdominal pain [Unknown]
  - Haemoglobin decreased [Unknown]
  - Activated partial thromboplastin time prolonged [Unknown]
